FAERS Safety Report 22134771 (Version 1)
Quarter: 2023Q1

REPORT INFORMATION
  Report Type: Spontaneous
  Country: JP (occurrence: JP)
  Receive Date: 20230324
  Receipt Date: 20230324
  Transmission Date: 20230417
  Serious: Yes (Death, Other)
  Sender: FDA-Public Use
  Company Number: JP-AUROBINDO-AUR-APL-2023-013168

PATIENT
  Age: 61 Year
  Sex: Male

DRUGS (8)
  1. FOLOTYN [Suspect]
     Active Substance: PRALATREXATE
     Indication: Angiocentric lymphoma
     Dosage: UNK
     Route: 042
  2. DEXAMETHASONE [Concomitant]
     Active Substance: DEXAMETHASONE
     Indication: Product used for unknown indication
     Dosage: UNK
     Route: 065
  3. METHOTREXATE [Concomitant]
     Active Substance: METHOTREXATE
     Indication: Product used for unknown indication
     Dosage: UNK
     Route: 065
  4. IFOSFAMIDE [Concomitant]
     Active Substance: IFOSFAMIDE
     Indication: Product used for unknown indication
     Dosage: UNK
     Route: 065
  5. ASPARAGINASE [Concomitant]
     Active Substance: ASPARAGINASE
     Indication: Product used for unknown indication
     Dosage: UNK
     Route: 065
  6. ETOPOSIDE [Concomitant]
     Active Substance: ETOPOSIDE
     Indication: Product used for unknown indication
     Dosage: UNK
     Route: 065
  7. GEMCITABINE [Concomitant]
     Active Substance: GEMCITABINE
     Indication: Product used for unknown indication
  8. CARBOPLATIN [Concomitant]
     Active Substance: CARBOPLATIN
     Indication: Product used for unknown indication
     Dosage: UNK
     Route: 065

REACTIONS (4)
  - Hepatic function abnormal [Fatal]
  - Malignant neoplasm progression [Fatal]
  - Myelosuppression [Fatal]
  - Melaena [Fatal]
